FAERS Safety Report 17053073 (Version 1)
Quarter: 2019Q4

REPORT INFORMATION
  Report Type: Spontaneous
  Country: UA (occurrence: UA)
  Receive Date: 20191120
  Receipt Date: 20191120
  Transmission Date: 20200122
  Serious: Yes (Other)
  Sender: FDA-Public Use
  Company Number: UA-TEVA-2019-UA-1133003

PATIENT

DRUGS (1)
  1. METHOTREXATE-TEVA [Suspect]
     Active Substance: METHOTREXATE
     Dosage: 100 MG/ ML 10 ML PER BOTTLE
     Route: 065

REACTIONS (3)
  - Hepatitis toxic [Unknown]
  - Aphthous ulcer [Unknown]
  - Mucosal inflammation [Unknown]
